FAERS Safety Report 11601483 (Version 1)
Quarter: 2015Q4

REPORT INFORMATION
  Report Type: Spontaneous
  Country: US (occurrence: US)
  Receive Date: 20151006
  Receipt Date: 20151006
  Transmission Date: 20160304
  Serious: No
  Sender: FDA-Public Use
  Company Number: US-AMGEN-USASP2015042932

PATIENT
  Age: 70 Year
  Sex: Female

DRUGS (1)
  1. PROLIA [Suspect]
     Active Substance: DENOSUMAB
     Indication: PRODUCT USED FOR UNKNOWN INDICATION
     Dosage: UNK
     Route: 065
     Dates: start: 201310

REACTIONS (8)
  - Stress [Unknown]
  - Eating disorder [Unknown]
  - Chest pain [Recovered/Resolved]
  - Dysgeusia [Unknown]
  - Rash [Unknown]
  - Confluent and reticulate papillomatosis [Recovered/Resolved]
  - Insomnia [Unknown]
  - Pain [Unknown]
